FAERS Safety Report 13648635 (Version 1)
Quarter: 2017Q2

REPORT INFORMATION
  Report Type: Report from Study
  Country: ES (occurrence: ES)
  Receive Date: 20170613
  Receipt Date: 20170613
  Transmission Date: 20170830
  Serious: Yes (Hospitalization)
  Sender: FDA-Public Use
  Company Number: ES-CELGENEUS-ESP-20170602941

PATIENT
  Age: 71 Year
  Sex: Male
  Weight: 76.8 kg

DRUGS (3)
  1. ABRAXANE [Suspect]
     Active Substance: PACLITAXEL
     Indication: NON-SMALL CELL LUNG CANCER
     Route: 041
     Dates: start: 20170420
  2. NECITUMUMAB [Suspect]
     Active Substance: NECITUMUMAB
     Indication: NON-SMALL CELL LUNG CANCER
     Dosage: 800 MILLIGRAM
     Route: 041
     Dates: start: 20170420
  3. CARBOPLATIN. [Suspect]
     Active Substance: CARBOPLATIN
     Indication: NON-SMALL CELL LUNG CANCER
     Dosage: 845 MILLIGRAM
     Route: 041
     Dates: start: 20170420

REACTIONS (2)
  - Pneumothorax [Recovering/Resolving]
  - Pleural effusion [Recovering/Resolving]

NARRATIVE: CASE EVENT DATE: 20170530
